FAERS Safety Report 5550626-7 (Version None)
Quarter: 2007Q4

REPORT INFORMATION
  Report Type: 
  Country: None (occurrence: None)
  Receive Date: 20071212
  Receipt Date: 20071130
  Transmission Date: 20080405
  Serious: Yes (Other)
  Sender: FDA-Public Use
  Company Number: US-BAYER-200714007BCC

PATIENT
  Age: 47 Year
  Sex: Male
  Weight: 104 kg

DRUGS (3)
  1. RID LICE KILLING SHAMPOO AND CONDITIONER [Suspect]
     Indication: LICE INFESTATION
     Route: 061
     Dates: start: 20071120
  2. RID LICE KILLING SHAMPOO AND CONDITIONER [Suspect]
     Route: 061
     Dates: start: 20071130
  3. RID COMB [Suspect]
     Indication: LICE INFESTATION
     Dates: start: 20071120

REACTIONS (1)
  - APPLICATION SITE BLEEDING [None]
